FAERS Safety Report 24096777 (Version 1)
Quarter: 2024Q3

REPORT INFORMATION
  Report Type: Spontaneous
  Country: US (occurrence: US)
  Receive Date: 20240716
  Receipt Date: 20240716
  Transmission Date: 20241016
  Serious: Yes (Other)
  Sender: AMGEN
  Company Number: US-AMGEN-USASP2024135554

PATIENT
  Age: 31 Year
  Sex: Female

DRUGS (3)
  1. PREDNISONE [Suspect]
     Active Substance: PREDNISONE
     Indication: Pyoderma gangrenosum
     Dosage: TAPERS
     Route: 065
  2. INFLIXIMAB [Suspect]
     Active Substance: INFLIXIMAB
     Indication: PASH syndrome
     Dosage: 2 DOSES
     Route: 065
  3. DOXYCYCLINE [Concomitant]
     Active Substance: DOXYCYCLINE\DOXYCYCLINE HYCLATE
     Indication: Pyoderma gangrenosum

REACTIONS (8)
  - Acute kidney injury [Unknown]
  - White blood cell disorder [Unknown]
  - Anaemia [Unknown]
  - Hidradenitis [Recovering/Resolving]
  - Infusion related reaction [Unknown]
  - Off label use [Unknown]
  - Drug effective for unapproved indication [Unknown]
  - Treatment failure [Unknown]
